FAERS Safety Report 10021924 (Version 1)
Quarter: 2014Q1

REPORT INFORMATION
  Report Type: Spontaneous
  Country: US (occurrence: None)
  Receive Date: 20140318
  Receipt Date: 20140318
  Transmission Date: 20141002
  Serious: No
  Sender: FDA-Public Use
  Company Number: None

PATIENT
  Age: 81 Year
  Sex: Male

DRUGS (11)
  1. ERBITUX [Suspect]
     Indication: CHEMOTHERAPY
     Dates: start: 20130722, end: 20130722
  2. ASPIRIN [Concomitant]
  3. OPTHALMIC SOLUTION [Concomitant]
  4. MECLIZINE [Concomitant]
  5. METOPROLOL TARTRATE [Concomitant]
  6. MULTIVITAMIN [Suspect]
  7. NITROGLYCERIN [Suspect]
  8. ROSUVASTATIN [Concomitant]
  9. ASPIRIN [Concomitant]
  10. CLOPIDOGREL [Concomitant]
  11. GEMFIBROZIL [Concomitant]

REACTIONS (5)
  - Feeling hot [None]
  - Oxygen saturation decreased [None]
  - Unresponsive to stimuli [None]
  - Vomiting [None]
  - Pulse absent [None]
